FAERS Safety Report 8906360 (Version 1)
Quarter: 2012Q4

REPORT INFORMATION
  Report Type: Spontaneous
  Country: US (occurrence: None)
  Receive Date: 20121109
  Receipt Date: 20121109
  Transmission Date: 20130627
  Serious: Yes (Other)
  Sender: FDA-Public Use
  Company Number: None

PATIENT
  Age: 25 Year
  Sex: Female
  Weight: 97.07 kg

DRUGS (2)
  1. MIRENA [Suspect]
     Indication: BIRTH CONTROL
     Dosage: CONTSTANT DOSE
     Route: 015
     Dates: start: 20091111, end: 20120906
  2. MIRENA [Suspect]
     Indication: HEAVY BLEEDING
     Dosage: CONTSTANT DOSE
     Route: 015
     Dates: start: 20091111, end: 20120906

REACTIONS (3)
  - Device dislocation [None]
  - Vaginal haemorrhage [None]
  - Syncope [None]
